FAERS Safety Report 23864568 (Version 2)
Quarter: 2024Q2

REPORT INFORMATION
  Report Type: Spontaneous
  Country: US (occurrence: US)
  Receive Date: 20240516
  Receipt Date: 20240610
  Transmission Date: 20240716
  Serious: No
  Sender: FDA-Public Use
  Company Number: US-SA-SAC20240508001570

PATIENT
  Age: 54 Year
  Sex: Female

DRUGS (6)
  1. DUPIXENT [Suspect]
     Active Substance: DUPILUMAB
     Indication: Nasal polyps
     Dosage: 300 MG, QOW
     Route: 058
     Dates: start: 20231226
  2. ALBUTEROL SULFATE [Concomitant]
     Active Substance: ALBUTEROL SULFATE
     Dosage: TAKE 2 PUFFS BY MOUTH EVERY 4 TO 6 HOURS AS NEEDED
  3. CARVEDILOL [Concomitant]
     Active Substance: CARVEDILOL
     Dosage: 1 DF, BID
     Route: 048
  4. LISINOPRIL [Concomitant]
     Active Substance: LISINOPRIL
     Dosage: 1 DF, BID
     Route: 048
  5. PULMICORT FLEXHALER [Concomitant]
     Active Substance: BUDESONIDE
     Dosage: 180 UG, QD
     Route: 055
  6. XHANCE [Concomitant]
     Active Substance: FLUTICASONE PROPIONATE
     Dosage: SPRAY 1 SPRAY BY INTRANASAL ROUTE 2.TIMES EVERY
     Route: 045

REACTIONS (3)
  - Psoriasis [Recovering/Resolving]
  - Rash [Not Recovered/Not Resolved]
  - Pruritus [Unknown]

NARRATIVE: CASE EVENT DATE: 20240101
